FAERS Safety Report 10157889 (Version 2)
Quarter: 2014Q2

REPORT INFORMATION
  Report Type: Spontaneous
  Country: US (occurrence: US)
  Receive Date: 20140507
  Receipt Date: 20140606
  Transmission Date: 20141212
  Serious: No
  Sender: FDA-Public Use
  Company Number: US-009507513-1405USA000320

PATIENT
  Sex: Female
  Weight: 51.7 kg

DRUGS (1)
  1. OXYTROL FOR WOMEN [Suspect]
     Indication: HYPERTONIC BLADDER
     Dosage: 5 TIMES IN 2 MONTHS
     Route: 062
     Dates: start: 201402, end: 201403

REACTIONS (4)
  - Fluid retention [Unknown]
  - Drug effect delayed [Recovered/Resolved]
  - Off label use [Unknown]
  - Drug prescribing error [Unknown]
